FAERS Safety Report 15807930 (Version 3)
Quarter: 2019Q1

REPORT INFORMATION
  Report Type: Spontaneous
  Country: DE (occurrence: DE)
  Receive Date: 20190110
  Receipt Date: 20190226
  Transmission Date: 20190417
  Serious: Yes (Hospitalization)
  Sender: FDA-Public Use
  Company Number: DE-PFIZER INC-2019009416

PATIENT
  Age: 45 Year
  Sex: Male
  Weight: 112 kg

DRUGS (14)
  1. METHOTREXATE SODIUM. [Suspect]
     Active Substance: METHOTREXATE SODIUM
     Indication: CROHN^S DISEASE
     Dosage: 15 MG, 1X/DAY
     Route: 058
     Dates: end: 20181106
  2. FLIXABI [Suspect]
     Active Substance: INFLIXIMAB
     Dosage: 1100 MG, EVERY 4 WEEKS
     Dates: start: 20181008, end: 20181106
  3. PREDNISOLON [Suspect]
     Active Substance: PREDNISOLONE
     Dosage: 5 MG, UNK
     Route: 048
  4. NOVALGIN (METAMIZOLE SODIUM) [Concomitant]
     Active Substance: METAMIZOLE SODIUM
     Indication: PAIN
     Dosage: 500 MG, AS NEEDED
  5. METAMIZOLE SODIUM [Concomitant]
     Active Substance: METAMIZOLE SODIUM
     Dosage: 500 MG, AS NEEDED, HIGHEST DAILY DOSE 4,000 MG
     Route: 048
  6. REMERGIL SOLTAB [Concomitant]
     Active Substance: MIRTAZAPINE
     Indication: DEPRESSION
     Dosage: 30 MG, 1X/DAY
     Route: 048
  7. FLIXABI [Suspect]
     Active Substance: INFLIXIMAB
     Dosage: 1100 MG, EVERY FOUR WEEKS
     Dates: start: 20181106, end: 20181106
  8. MIRTAZAPINE. [Concomitant]
     Active Substance: MIRTAZAPINE
     Indication: DEPRESSION
     Dosage: 30 MG, 1X/DAY
  9. FLIXABI [Suspect]
     Active Substance: INFLIXIMAB
     Indication: CROHN^S DISEASE
     Dosage: 1100 MG, EVERY FOUR WEEKS
     Dates: start: 20180831, end: 20181106
  10. PENTASA [Suspect]
     Active Substance: MESALAMINE
     Dosage: 1000 MG, 2X/DAY (2-0-2)
  11. PREDNISOLON [Suspect]
     Active Substance: PREDNISOLONE
     Indication: CROHN^S DISEASE
     Dosage: 10 MG, 1X/DAY
     Dates: end: 20181113
  12. PANTOPRAZOLE [Concomitant]
     Active Substance: PANTOPRAZOLE
     Indication: GASTRIC DISORDER
     Dosage: 40 MG, 1X/DAY
     Route: 048
  13. PENTASA [Suspect]
     Active Substance: MESALAMINE
     Indication: CROHN^S DISEASE
     Dosage: 1000 MG, ALTERNATE DAY
  14. FOLSAN [Concomitant]
     Active Substance: FOLIC ACID
     Dosage: 5 MG, UNK
     Route: 048

REACTIONS (2)
  - Product use in unapproved indication [Unknown]
  - Ileus [Recovered/Resolved]

NARRATIVE: CASE EVENT DATE: 20181110
